FAERS Safety Report 6857909-9 (Version None)
Quarter: 2010Q3

REPORT INFORMATION
  Report Type: 
  Country: None (occurrence: None)
  Receive Date: 20100715
  Receipt Date: 20100701
  Transmission Date: 20110219
  Serious: Yes (Other)
  Sender: FDA-Public Use
  Company Number: 7009847

PATIENT
  Age: 31 Year
  Sex: Female

DRUGS (1)
  1. REBIF [Suspect]
     Indication: MULTIPLE SCLEROSIS
     Dates: start: 20040101, end: 20060701

REACTIONS (4)
  - ANAPHYLACTIC SHOCK [None]
  - CONDITION AGGRAVATED [None]
  - DEAFNESS NEUROSENSORY [None]
  - MULTIPLE SCLEROSIS [None]
